FAERS Safety Report 9511262 (Version 1)
Quarter: 2013Q3

REPORT INFORMATION
  Report Type: Spontaneous
  Country: US (occurrence: None)
  Receive Date: 20130909
  Receipt Date: 20130909
  Transmission Date: 20140515
  Serious: Yes (Other)
  Sender: FDA-Public Use
  Company Number: None

PATIENT
  Age: 55 Year
  Sex: Female
  Weight: 95.26 kg

DRUGS (8)
  1. LISINOPRIL/HCTZ 10/12.5 SANDOZ [Suspect]
     Indication: HYPERTENSION
     Dosage: 1 PILL ONCE DAILY TAKEN BY MOUTH
     Route: 048
     Dates: start: 20090101, end: 20130601
  2. LOVASTATIN [Concomitant]
  3. AMLODIPINE [Concomitant]
  4. CPAP [Concomitant]
  5. ONE A DAY [Concomitant]
  6. GLUCOSAMINE CHONDROITIN [Concomitant]
  7. FISH OIL [Concomitant]
  8. BABY ASPIRIN [Concomitant]

REACTIONS (1)
  - Tongue disorder [None]
